FAERS Safety Report 5097212-3 (Version None)
Quarter: 2006Q3

REPORT INFORMATION
  Report Type: 
  Country: None (occurrence: None)
  Receive Date: 20060906
  Receipt Date: 20060504
  Transmission Date: 20061208
  Serious: Yes (Death, Other)
  Sender: FDA-Public Use
  Company Number: DE-AMGEN-UK178592

PATIENT
  Sex: Female
  Weight: 71 kg

DRUGS (16)
  1. MIMPARA [Suspect]
     Indication: HYPERPARATHYROIDISM SECONDARY
     Route: 048
     Dates: start: 20051126, end: 20060608
  2. AZATHIOPRINE [Suspect]
     Route: 048
     Dates: start: 20060112, end: 20060714
  3. DECORTIN-H [Concomitant]
     Route: 048
     Dates: start: 20051201
  4. MARCUMAR [Concomitant]
     Route: 048
     Dates: start: 20040106
  5. PANTOZOL [Concomitant]
     Route: 065
     Dates: start: 20040722
  6. PHOSPHONORM [Concomitant]
     Route: 065
     Dates: start: 20051020, end: 20060112
  7. RENAGEL [Concomitant]
     Route: 065
     Dates: start: 20060615
  8. SIMVASTATIN [Concomitant]
     Route: 065
     Dates: start: 20060321
  9. VITARENAL [Concomitant]
     Route: 065
     Dates: start: 20000217
  10. ACTIVELLA [Concomitant]
     Route: 065
     Dates: start: 20030313
  11. BELOC ZOK [Concomitant]
     Route: 065
     Dates: start: 20040306, end: 20060321
  12. DIGIMERCK [Concomitant]
     Dates: start: 20040722, end: 20060315
  13. ENALAPRIL [Concomitant]
     Route: 065
     Dates: start: 20020301
  14. MESTINON [Concomitant]
     Route: 065
     Dates: start: 20051210, end: 20060112
  15. NITRENDIPINE [Concomitant]
     Route: 065
     Dates: start: 20040108, end: 20060112
  16. MORPHINE [Concomitant]

REACTIONS (8)
  - CALCIPHYLAXIS [None]
  - DEATH [None]
  - DELIRIUM [None]
  - MYASTHENIA GRAVIS [None]
  - PARAESTHESIA [None]
  - PULSE ABSENT [None]
  - SOFT TISSUE INFECTION [None]
  - SOFT TISSUE NECROSIS [None]
